FAERS Safety Report 19854528 (Version 1)
Quarter: 2021Q3

REPORT INFORMATION
  Report Type: Spontaneous
  Country: US (occurrence: US)
  Receive Date: 20210920
  Receipt Date: 20210920
  Transmission Date: 20211014
  Serious: No
  Sender: FDA-Public Use
  Company Number: US-SA-2021SA308124

PATIENT
  Sex: Female

DRUGS (6)
  1. SYMBICORT [Concomitant]
     Active Substance: BUDESONIDE\FORMOTEROL FUMARATE DIHYDRATE
  2. ADLYXIN [Concomitant]
     Active Substance: LIXISENATIDE
  3. BENTONITE [Concomitant]
     Active Substance: BENTONITE
  4. BENADRYL ALLERGY [CETIRIZINE HYDROCHLORIDE] [Concomitant]
     Active Substance: CETIRIZINE HYDROCHLORIDE
  5. DUPIXENT [Suspect]
     Active Substance: DUPILUMAB
     Indication: HEPATITIS VIRAL
     Route: 058
  6. PREDNISOLONE. [Concomitant]
     Active Substance: PREDNISOLONE

REACTIONS (2)
  - Product use in unapproved indication [Unknown]
  - Product dose omission issue [Unknown]
